FAERS Safety Report 16193293 (Version 1)
Quarter: 2019Q2

REPORT INFORMATION
  Report Type: Spontaneous
  Country: US (occurrence: US)
  Receive Date: 20190413
  Receipt Date: 20190413
  Transmission Date: 20190711
  Serious: No
  Sender: FDA-Public Use
  Company Number: US-TEVA-2019-US-1026792

PATIENT
  Sex: Female

DRUGS (2)
  1. PROMETRIUM [Suspect]
     Active Substance: PROGESTERONE
     Indication: HORMONE REPLACEMENT THERAPY
     Dosage: TWO 100 MG PILLS AT NIGHT
     Route: 065
     Dates: start: 20190118, end: 20190225
  2. PROMETRIUM [Suspect]
     Active Substance: PROGESTERONE
     Route: 065
     Dates: start: 20190225

REACTIONS (4)
  - Hot flush [Unknown]
  - Drug ineffective [Unknown]
  - Night sweats [Unknown]
  - Hyperhidrosis [Unknown]
